FAERS Safety Report 7608378-2 (Version None)
Quarter: 2011Q3

REPORT INFORMATION
  Report Type: 
  Country: None (occurrence: None)
  Receive Date: 20110714
  Receipt Date: 20110705
  Transmission Date: 20111222
  Serious: Yes (Hospitalization)
  Sender: FDA-Public Use
  Company Number: LT-AMGEN-LTUCT2010003636

PATIENT
  Age: 62 Year
  Sex: Male

DRUGS (7)
  1. LEUPRORELIN [Concomitant]
     Dosage: UNK
     Route: 058
     Dates: start: 20080422
  2. CALCIGRAN [Concomitant]
     Dosage: 500 MG, QD
     Route: 048
     Dates: start: 20081006
  3. DICLOFENACUM NATRICUM [Concomitant]
     Dosage: 100 MG, BID
     Route: 048
     Dates: start: 20100406
  4. DENOSUMAB [Suspect]
     Indication: METASTASES TO BONE
     Dosage: 1.7 ML, Q4WK
     Route: 058
     Dates: start: 20100223, end: 20101105
  5. ACUZIDE [Concomitant]
     Dosage: 32.5 MG, QD
     Route: 048
     Dates: start: 20050101
  6. MOXONIDINE [Concomitant]
     Dosage: UNK
     Dates: start: 20050101
  7. DILTIAZEM [Concomitant]
     Dosage: 180 MG, QD
     Route: 048
     Dates: start: 20050101

REACTIONS (1)
  - OSTEOMYELITIS [None]
